FAERS Safety Report 16854284 (Version 3)
Quarter: 2021Q2

REPORT INFORMATION
  Report Type: Spontaneous
  Country: US (occurrence: US)
  Receive Date: 20190926
  Receipt Date: 20210614
  Transmission Date: 20210716
  Serious: Yes (Other)
  Sender: FDA-Public Use
  Company Number: US-GILEAD-2019-0429854

PATIENT
  Age: 71 Year
  Sex: Male
  Weight: 56.24 kg

DRUGS (35)
  1. FOSAMAX [Concomitant]
     Active Substance: ALENDRONATE SODIUM
  2. AMLODIPINE [Concomitant]
     Active Substance: AMLODIPINE BESYLATE
  3. MYFORTIC [Concomitant]
     Active Substance: MYCOPHENOLATE SODIUM
  4. OLYSIO [Concomitant]
     Active Substance: SIMEPREVIR
  5. TACROLIMUS. [Concomitant]
     Active Substance: TACROLIMUS
  6. VALSARTAN. [Concomitant]
     Active Substance: VALSARTAN
  7. EPZICOM [Concomitant]
     Active Substance: ABACAVIR SULFATE\LAMIVUDINE
  8. TRIZIVIR [Concomitant]
     Active Substance: ABACAVIR SULFATE\LAMIVUDINE\ZIDOVUDINE
  9. ALENDRONATE SODIUM. [Concomitant]
     Active Substance: ALENDRONATE SODIUM
  10. ATORVASTATIN [Concomitant]
     Active Substance: ATORVASTATIN
  11. LANTUS [Concomitant]
     Active Substance: INSULIN GLARGINE
  12. VIREAD [Suspect]
     Active Substance: TENOFOVIR DISOPROXIL FUMARATE
     Indication: HIV INFECTION
     Dosage: UNK
     Route: 065
     Dates: start: 2001, end: 2007
  13. CALCITRIOL. [Concomitant]
     Active Substance: CALCITRIOL
  14. KALETRA [Concomitant]
     Active Substance: LOPINAVIR\RITONAVIR
  15. REYATAZ [Concomitant]
     Active Substance: ATAZANAVIR SULFATE
  16. DEXILANT [Concomitant]
     Active Substance: DEXLANSOPRAZOLE
  17. NIFEDICAL XL [Concomitant]
     Active Substance: NIFEDIPINE
  18. LISINOPRIL. [Concomitant]
     Active Substance: LISINOPRIL
  19. COMPLERA [Suspect]
     Active Substance: EMTRICITABINE\RILPIVIRINE HYDROCHLORIDE\TENOFOVIR DISOPROXIL FUMARATE
     Indication: HIV INFECTION
     Dosage: UNK
     Route: 048
  20. ALENDRONATE [Concomitant]
     Active Substance: ALENDRONATE SODIUM
  21. ERGOCALCIFEROL. [Concomitant]
     Active Substance: ERGOCALCIFEROL
  22. METOPROLOL TARTRATE. [Concomitant]
     Active Substance: METOPROLOL TARTRATE
  23. TRUVADA [Suspect]
     Active Substance: EMTRICITABINE\TENOFOVIR DISOPROXIL FUMARATE
     Indication: HIV INFECTION
     Dosage: UNK
     Route: 048
     Dates: start: 2001, end: 2007
  24. PANTOPRAZOLE [Concomitant]
     Active Substance: PANTOPRAZOLE
  25. PREDNISONE. [Concomitant]
     Active Substance: PREDNISONE
  26. SOVALDI [Concomitant]
     Active Substance: SOFOSBUVIR
  27. ISENTRESS [Concomitant]
     Active Substance: RALTEGRAVIR POTASSIUM
  28. NORVIR [Concomitant]
     Active Substance: RITONAVIR
  29. TRIUMEQ [Concomitant]
     Active Substance: ABACAVIR SULFATE\DOLUTEGRAVIR SODIUM\LAMIVUDINE
  30. ZIAGEN [Concomitant]
     Active Substance: ABACAVIR SULFATE
  31. CLINDAMYCIN. [Concomitant]
     Active Substance: CLINDAMYCIN
  32. MAGNESIUM OXIDE. [Concomitant]
     Active Substance: MAGNESIUM OXIDE
  33. NOVOLOG [Concomitant]
     Active Substance: INSULIN ASPART
  34. NUCYNTA [Concomitant]
     Active Substance: TAPENTADOL HYDROCHLORIDE
  35. OXYCODONE [Concomitant]
     Active Substance: OXYCODONE

REACTIONS (21)
  - End stage renal disease [Not Recovered/Not Resolved]
  - Dysstasia [Unknown]
  - Emotional distress [Not Recovered/Not Resolved]
  - Osteopenia [Not Recovered/Not Resolved]
  - Quality of life decreased [Unknown]
  - Anxiety [Not Recovered/Not Resolved]
  - Anhedonia [Not Recovered/Not Resolved]
  - Pain in extremity [Unknown]
  - Pain [Not Recovered/Not Resolved]
  - Osteoporosis [Not Recovered/Not Resolved]
  - Decreased activity [Unknown]
  - Arthralgia [Unknown]
  - Fatigue [Unknown]
  - Economic problem [Not Recovered/Not Resolved]
  - Renal failure [Unknown]
  - Gait disturbance [Unknown]
  - Immobile [Unknown]
  - Impaired work ability [Unknown]
  - Renal transplant [Unknown]
  - Back pain [Unknown]
  - Loss of personal independence in daily activities [Unknown]

NARRATIVE: CASE EVENT DATE: 2007
